FAERS Safety Report 8170239-0 (Version None)
Quarter: 2012Q1

REPORT INFORMATION
  Report Type: 
  Country: None (occurrence: None)
  Receive Date: 20120228
  Receipt Date: 20120221
  Transmission Date: 20120608
  Serious: Yes (Other)
  Sender: FDA-Public Use
  Company Number: PHEH2012US004278

PATIENT
  Sex: Female

DRUGS (27)
  1. PROMETHETAN [Concomitant]
     Dosage: UNK UKN, UNK
  2. ZOLPIDEM [Concomitant]
     Dosage: UNK UKN, UNK
  3. VITAMIN A [Concomitant]
     Dosage: UNK UKN, UNK
  4. PLAQUENIL [Concomitant]
     Dosage: UNK UKN, UNK
  5. ESTRADIOL [Concomitant]
     Dosage: UNK UKN, UNK
  6. CYCLOBENZAPRINE [Concomitant]
     Dosage: UNK UKN, UNK
  7. PERCOCET [Concomitant]
     Dosage: UNK UKN, UNK
  8. VITAMIN B6 [Concomitant]
     Dosage: UNK UKN, UNK
  9. MAGNESIUM [Concomitant]
     Dosage: UNK UKN, UNK
  10. CYMBALTA [Concomitant]
     Dosage: UNK UKN, UNK
  11. PROMETHAZINE [Concomitant]
     Dosage: UNK UKN, UNK
  12. IBUPROFEN [Concomitant]
     Dosage: UNK UKN, UNK
  13. VITAMIN B-12 [Concomitant]
     Dosage: UNK UKN, UNK
  14. CALCIUM [Concomitant]
     Dosage: UNK UKN, UNK
  15. EXFORGE [Suspect]
     Dosage: UNK UKN, UNK
  16. LORAZEPAM [Concomitant]
     Dosage: UNK UKN, UNK
  17. LORTAB [Concomitant]
     Dosage: UNK UKN, UNK
  18. ACETAMINOPHEN [Concomitant]
     Dosage: UNK UKN, UNK
  19. FISH OIL [Concomitant]
     Dosage: UNK UKN, UNK
  20. BLOOD PRESSURE MEDICATIONS [Suspect]
     Dosage: UNK UKN, UNK
  21. MILNACIPRAN [Concomitant]
     Dosage: UNK UKN, UNK
  22. PREDNISONE TAB [Concomitant]
     Dosage: UNK UKN, UNK
  23. ONDANSETRON [Concomitant]
     Dosage: UNK UKN, UNK
  24. MIRAPEX [Concomitant]
     Dosage: UNK UKN, UNK
  25. MULTI-VITAMIN [Concomitant]
     Dosage: UNK UKN, UNK
  26. FLAX SEED OIL [Concomitant]
     Dosage: UNK UKN, UNK
  27. CINNAMON [Concomitant]
     Dosage: UNK UKN, UNK

REACTIONS (1)
  - RIB FRACTURE [None]
